FAERS Safety Report 25952000 (Version 1)
Quarter: 2025Q4

REPORT INFORMATION
  Report Type: Report from Study
  Country: ZA (occurrence: ZA)
  Receive Date: 20251023
  Receipt Date: 20251023
  Transmission Date: 20260118
  Serious: Yes (Hospitalization, Other)
  Sender: ABBVIE
  Company Number: ZA-ABBVIE-6509932

PATIENT
  Age: 46 Year
  Sex: Female

DRUGS (2)
  1. HUMIRA [Suspect]
     Active Substance: ADALIMUMAB
     Indication: Psoriatic arthropathy
     Route: 058
     Dates: start: 20250221, end: 202510
  2. LEFLUNOMIDE [Concomitant]
     Active Substance: LEFLUNOMIDE
     Indication: Product used for unknown indication
     Dates: start: 20250221

REACTIONS (15)
  - Encephalitis autoimmune [Unknown]
  - Constipation [Unknown]
  - Gastrointestinal inflammation [Unknown]
  - Hyperreflexia [Unknown]
  - Hypoaesthesia [Unknown]
  - Hemiparesis [Unknown]
  - Abdominal pain [Unknown]
  - Facial asymmetry [Unknown]
  - Photophobia [Unknown]
  - Headache [Unknown]
  - Gait disturbance [Unknown]
  - Drug specific antibody present [Unknown]
  - Magnetic resonance imaging abnormal [Unknown]
  - CSF protein increased [Unknown]
  - Paraesthesia [Unknown]

NARRATIVE: CASE EVENT DATE: 20250101
